FAERS Safety Report 21631155 (Version 1)
Quarter: 2022Q4

REPORT INFORMATION
  Report Type: Spontaneous
  Country: TR (occurrence: TR)
  Receive Date: 20221123
  Receipt Date: 20221123
  Transmission Date: 20230113
  Serious: Yes (Other)
  Sender: FDA-Public Use
  Company Number: TR-ABBVIE-4210878

PATIENT
  Age: 62 Year

DRUGS (1)
  1. SKYRIZI [Suspect]
     Active Substance: RISANKIZUMAB-RZAA
     Indication: Psoriasis
     Dosage: DOSAGE: UNKNOWN; FREQUENCY :UNKNOWN
     Route: 058

REACTIONS (1)
  - Myocardial infarction [Recovered/Resolved]
